FAERS Safety Report 15802202 (Version 1)
Quarter: 2019Q1

REPORT INFORMATION
  Report Type: Spontaneous
  Country: US (occurrence: US)
  Receive Date: 20190108
  Receipt Date: 20190108
  Transmission Date: 20190417
  Serious: Yes (Life-Threatening, Hospitalization)
  Sender: FDA-Public Use
  Company Number: None

PATIENT
  Age: 51 Year
  Sex: Female
  Weight: 61.2 kg

DRUGS (4)
  1. AZATHIOPRINE. [Suspect]
     Active Substance: AZATHIOPRINE
     Indication: CHRONIC INFLAMMATORY DEMYELINATING POLYRADICULONEUROPATHY
     Dosage: ?          QUANTITY:3 TABLET(S);OTHER FREQUENCY:2 IN AM 1 PM;?
     Route: 048
     Dates: start: 20140808, end: 20190102
  2. ROSUVASTATIN. [Concomitant]
     Active Substance: ROSUVASTATIN
  3. GABAPENTIN. [Concomitant]
     Active Substance: GABAPENTIN
  4. IBUPROPHIN [Concomitant]

REACTIONS (5)
  - Red blood cell count decreased [None]
  - Platelet count decreased [None]
  - Haemoglobin decreased [None]
  - White blood cell count decreased [None]
  - Haematocrit decreased [None]

NARRATIVE: CASE EVENT DATE: 20190102
